FAERS Safety Report 25752336 (Version 1)
Quarter: 2025Q3

REPORT INFORMATION
  Report Type: Spontaneous
  Country: US (occurrence: None)
  Receive Date: 20250830
  Receipt Date: 20250830
  Transmission Date: 20251021
  Serious: Yes (unspecified)
  Sender: FDA-CTU
  Company Number: None

PATIENT
  Age: 43 Year
  Sex: Female
  Weight: 55.35 kg

DRUGS (2)
  1. UNSPECIFIED INGREDIENT [Suspect]
     Active Substance: UNSPECIFIED INGREDIENT
     Indication: Cerebrospinal fluid leakage
  2. IBUPROFEN [Concomitant]
     Active Substance: IBUPROFEN

REACTIONS (8)
  - Arachnoiditis [None]
  - Disability [None]
  - Impaired work ability [None]
  - Loss of personal independence in daily activities [None]
  - Connective tissue disorder [None]
  - Hypermobility syndrome [None]
  - Ehlers-Danlos syndrome [None]
  - Bedridden [None]

NARRATIVE: CASE EVENT DATE: 20231222
